FAERS Safety Report 20749774 (Version 1)
Quarter: 2022Q2

REPORT INFORMATION
  Report Type: Spontaneous
  Country: GB (occurrence: GB)
  Receive Date: 20220426
  Receipt Date: 20220426
  Transmission Date: 20220721
  Serious: Yes (Hospitalization, Other)
  Sender: FDA-Public Use
  Company Number: GB-MHRA-MED-202204200930276790-4XEGU

PATIENT
  Age: 58 Year
  Sex: Female
  Weight: 99 kg

DRUGS (1)
  1. ATORVASTATIN [Suspect]
     Active Substance: ATORVASTATIN
     Indication: Angina unstable
     Dosage: 40 MILLIGRAM
     Dates: start: 202201, end: 20220418

REACTIONS (7)
  - Blood urine present [Recovered/Resolved]
  - Renal pain [Recovered/Resolved]
  - Medication error [Unknown]
  - Paraesthesia [Recovering/Resolving]
  - Headache [Recovering/Resolving]
  - Tinnitus [Recovering/Resolving]
  - Arthralgia [Recovering/Resolving]

NARRATIVE: CASE EVENT DATE: 20220417
